FAERS Safety Report 5983987-5 (Version None)
Quarter: 2008Q4

REPORT INFORMATION
  Report Type: 
  Country: None (occurrence: None)
  Receive Date: 20081208
  Receipt Date: 20081203
  Transmission Date: 20090506
  Serious: Yes (Hospitalization)
  Sender: FDA-Public Use
  Company Number: DE-ROCHE-600806

PATIENT
  Sex: Male

DRUGS (1)
  1. XELODA [Suspect]
     Dosage: 5 CYCLES COMPLETED
     Route: 065

REACTIONS (1)
  - RECTAL ABSCESS [None]
